FAERS Safety Report 23437663 (Version 1)
Quarter: 2024Q1

REPORT INFORMATION
  Report Type: Spontaneous
  Country: US (occurrence: US)
  Receive Date: 20240124
  Receipt Date: 20240124
  Transmission Date: 20240410
  Serious: Yes (Other)
  Sender: FDA-Public Use
  Company Number: US-TARO PHARMACEUTICALS USA INC.-2024TAR00074

PATIENT

DRUGS (3)
  1. CLOBETASOL [Suspect]
     Active Substance: CLOBETASOL
     Indication: Lichen planus
     Dosage: UNK, APPLY TO AFFECTED AREAS, TO VARIOUS AREAS ON THE BODY INCLUDING: SCALP, ARM, LEGS, THIN LAYER O
     Route: 061
     Dates: start: 202208
  2. ALBUTEROL [Concomitant]
     Active Substance: ALBUTEROL
     Indication: Product used for unknown indication
     Dosage: BEEN ON BOTH FOR YEARS
     Route: 065
  3. Trillogy [Concomitant]
     Indication: Product used for unknown indication
     Dosage: BEEN ON BOTH FOR YEARS
     Route: 065

REACTIONS (7)
  - Autoimmune disorder [Not Recovered/Not Resolved]
  - Application site vesicles [Not Recovered/Not Resolved]
  - Pustule [Not Recovered/Not Resolved]
  - Vitiligo [Not Recovered/Not Resolved]
  - Application site pruritus [Not Recovered/Not Resolved]
  - Skin atrophy [Not Recovered/Not Resolved]
  - Off label use [Unknown]
